FAERS Safety Report 7247788-2 (Version None)
Quarter: 2011Q1

REPORT INFORMATION
  Report Type: 
  Country: None (occurrence: None)
  Receive Date: 20110127
  Receipt Date: 20110114
  Transmission Date: 20110831
  Serious: Yes (Death, Hospitalization, Other)
  Sender: FDA-Public Use
  Company Number: PH-ELI_LILLY_AND_COMPANY-PH200911003690

PATIENT
  Age: 60 Year
  Sex: Female

DRUGS (2)
  1. ANTIHYPERTENSIVES [Concomitant]
     Indication: HYPERTENSION
  2. CYMBALTA [Suspect]
     Indication: ANXIETY
     Dosage: 30 MG, UNK

REACTIONS (2)
  - CARDIAC ARREST [None]
  - CHEST PAIN [None]
